FAERS Safety Report 11579612 (Version 1)
Quarter: 2015Q3

REPORT INFORMATION
  Report Type: Spontaneous
  Country: US (occurrence: US)
  Receive Date: 20150930
  Receipt Date: 20150930
  Transmission Date: 20151125
  Serious: No
  Sender: FDA-Public Use
  Company Number: US-TAKEDA-2015TUS012987

PATIENT
  Sex: Male
  Weight: 113.38 kg

DRUGS (3)
  1. INDOMETHACIN                       /00003801/ [Concomitant]
     Active Substance: INDOMETHACIN
     Indication: GOUT
     Dosage: UNK, BID
     Route: 048
  2. ULORIC [Suspect]
     Active Substance: FEBUXOSTAT
     Indication: GOUT
  3. ULORIC [Suspect]
     Active Substance: FEBUXOSTAT
     Indication: HYPERURICAEMIA
     Dosage: 80 MG, QD
     Route: 048
     Dates: start: 20150822

REACTIONS (3)
  - Erythema [Not Recovered/Not Resolved]
  - Gout [Not Recovered/Not Resolved]
  - Joint swelling [Not Recovered/Not Resolved]
